FAERS Safety Report 8509007-6 (Version None)
Quarter: 2012Q3

REPORT INFORMATION
  Report Type: 
  Country: None (occurrence: None)
  Receive Date: 20120713
  Receipt Date: 20120705
  Transmission Date: 20120928
  Serious: Yes (Hospitalization, Other)
  Sender: FDA-Public Use
  Company Number: CA-PFIZER INC-2012161472

PATIENT
  Age: 83 Year
  Sex: Female
  Weight: 72 kg

DRUGS (20)
  1. FOSAVANCE [Concomitant]
     Dosage: 70/5600 TWICE MONTHLY
     Route: 048
     Dates: start: 20120216
  2. PRIMIDONE [Concomitant]
     Dosage: 250 MG, 1X/DAY AT BEDIME
     Route: 048
     Dates: start: 20120509
  3. OXYBUTYN [Concomitant]
     Dosage: 10 MG, 1X/DAY
     Route: 048
     Dates: start: 20120612, end: 20120101
  4. HYDROMORPHONE HCL [Concomitant]
     Dosage: 24 MG, EVERY 6 HOURS
     Route: 048
     Dates: start: 20120528
  5. ACETAMINOPHEN [Concomitant]
     Dosage: 650 MG, 4X/DAY
     Route: 048
     Dates: start: 20120503
  6. FUROSEMIDE [Concomitant]
     Dosage: 40MG UP TO 160MG DAILY
     Route: 048
     Dates: start: 20120301
  7. DETROL LA [Suspect]
     Indication: HYPERTONIC BLADDER
     Dosage: 1-2 AT BEDTIME
     Route: 048
     Dates: start: 20120614, end: 20120101
  8. LACTULOSE [Concomitant]
     Dosage: 30 ML, 1X/DAY
     Route: 048
     Dates: start: 20120528
  9. DIGOXIN [Concomitant]
     Dosage: 62.5 UG, 1X/DAY
     Route: 048
     Dates: start: 20120301
  10. BACLOFEN [Concomitant]
     Dosage: 5 MG, 1X/DAY
     Route: 048
     Dates: start: 20120612
  11. CITALOPRAM [Concomitant]
     Dosage: 20 MG, 1X/DAY
     Route: 048
     Dates: start: 20120401
  12. WARFARIN SODIUM [Interacting]
     Indication: ANTICOAGULANT THERAPY
     Dosage: 1MG AND 5MG TABLETS WITH DOSAGE VARYING
     Route: 048
     Dates: start: 20120503, end: 20120101
  13. MIRTAZAPINE [Concomitant]
     Dosage: 15 MG, 1X/DAY
     Route: 048
     Dates: start: 20120612
  14. DOCUSATE SODIUM [Concomitant]
     Dosage: 200 MG, 2X/DAY
     Route: 048
     Dates: start: 20120503
  15. AMILORIDE [Concomitant]
     Dosage: 5 MG, 1X/DAY
     Route: 048
     Dates: start: 20120301
  16. POTASSIUM [Concomitant]
     Dosage: 20 MEQ, 1X/DAY
     Route: 048
     Dates: start: 20120605
  17. ADVAIR DISKUS 100/50 [Concomitant]
     Dosage: 500/50 1 PUFF TWICE A DAY
     Route: 055
     Dates: start: 20120601
  18. SPIRIVA [Concomitant]
     Dosage: 1 PUFF DAILY
     Route: 055
     Dates: start: 20120523
  19. EZETIMIBE [Concomitant]
     Dosage: 10 MG, 1X/DAY AT BEDTIME
     Route: 048
     Dates: start: 20120406
  20. PANTOPRAZOLE [Concomitant]
     Dosage: 40 MG, 1X/DAY
     Route: 048
     Dates: start: 20120301

REACTIONS (3)
  - INTERNATIONAL NORMALISED RATIO INCREASED [None]
  - RETROPERITONEAL HAEMORRHAGE [None]
  - DRUG INTERACTION [None]
